FAERS Safety Report 9292185 (Version 1)
Quarter: 2013Q2

REPORT INFORMATION
  Report Type: Spontaneous
  Country: CZ (occurrence: CZ)
  Receive Date: 20130516
  Receipt Date: 20130516
  Transmission Date: 20140414
  Serious: Yes (Other)
  Sender: FDA-Public Use
  Company Number: CZ-JNJFOC-20130506641

PATIENT
  Sex: 0

DRUGS (20)
  1. INFLIXIMAB, RECOMBINANT [Suspect]
     Indication: JUVENILE IDIOPATHIC ARTHRITIS
     Route: 042
  2. INFLIXIMAB, RECOMBINANT [Suspect]
     Indication: PSORIATIC ARTHROPATHY
     Route: 042
  3. INFLIXIMAB, RECOMBINANT [Suspect]
     Indication: ANKYLOSING SPONDYLITIS
     Route: 042
  4. INFLIXIMAB, RECOMBINANT [Suspect]
     Indication: RHEUMATOID ARTHRITIS
     Route: 042
  5. GLUCOCORTICOIDS [Concomitant]
     Indication: JUVENILE IDIOPATHIC ARTHRITIS
     Route: 065
  6. GLUCOCORTICOIDS [Concomitant]
     Indication: PSORIATIC ARTHROPATHY
     Route: 065
  7. GLUCOCORTICOIDS [Concomitant]
     Indication: ANKYLOSING SPONDYLITIS
     Route: 065
  8. GLUCOCORTICOIDS [Concomitant]
     Indication: RHEUMATOID ARTHRITIS
     Route: 065
  9. METHOTREXATE [Concomitant]
     Indication: JUVENILE IDIOPATHIC ARTHRITIS
     Route: 065
  10. METHOTREXATE [Concomitant]
     Indication: PSORIATIC ARTHROPATHY
     Route: 065
  11. METHOTREXATE [Concomitant]
     Indication: ANKYLOSING SPONDYLITIS
     Route: 065
  12. METHOTREXATE [Concomitant]
     Indication: RHEUMATOID ARTHRITIS
     Route: 065
  13. LEFLUNOMIDE [Concomitant]
     Indication: JUVENILE IDIOPATHIC ARTHRITIS
     Route: 065
  14. LEFLUNOMIDE [Concomitant]
     Indication: PSORIATIC ARTHROPATHY
     Route: 065
  15. LEFLUNOMIDE [Concomitant]
     Indication: ANKYLOSING SPONDYLITIS
     Route: 065
  16. LEFLUNOMIDE [Concomitant]
     Indication: RHEUMATOID ARTHRITIS
     Route: 065
  17. SULFASALAZINE [Concomitant]
     Indication: JUVENILE IDIOPATHIC ARTHRITIS
     Route: 065
  18. SULFASALAZINE [Concomitant]
     Indication: PSORIATIC ARTHROPATHY
     Route: 065
  19. SULFASALAZINE [Concomitant]
     Indication: ANKYLOSING SPONDYLITIS
     Route: 065
  20. SULFASALAZINE [Concomitant]
     Indication: RHEUMATOID ARTHRITIS
     Route: 065

REACTIONS (2)
  - Latent tuberculosis [Unknown]
  - Interferon gamma level [Unknown]
